FAERS Safety Report 23966858 (Version 1)
Quarter: 2024Q2

REPORT INFORMATION
  Report Type: Report from Study
  Country: GB (occurrence: GB)
  Receive Date: 20240612
  Receipt Date: 20240612
  Transmission Date: 20240716
  Serious: Yes (Other)
  Sender: FDA-Public Use
  Company Number: GB-UCBSA-2022064095

PATIENT
  Sex: Female

DRUGS (1)
  1. CERTOLIZUMAB PEGOL [Suspect]
     Active Substance: CERTOLIZUMAB PEGOL
     Indication: Psoriatic arthropathy
     Dosage: 200 MILLIGRAM, EV 2 WEEKS(QOW)
     Route: 058
     Dates: start: 20171213

REACTIONS (6)
  - Psoriatic arthropathy [Not Recovered/Not Resolved]
  - Illness [Unknown]
  - COVID-19 [Not Recovered/Not Resolved]
  - Intervertebral disc protrusion [Unknown]
  - Product dose omission issue [Unknown]
  - Product distribution issue [Unknown]
